FAERS Safety Report 12305932 (Version 2)
Quarter: 2016Q2

REPORT INFORMATION
  Report Type: Spontaneous
  Country: JP (occurrence: JP)
  Receive Date: 20160426
  Receipt Date: 20160622
  Transmission Date: 20160815
  Serious: Yes (Death, Hospitalization)
  Sender: FDA-Public Use
  Company Number: JP-MYLANLABS-2016M1016769

PATIENT

DRUGS (4)
  1. CARBOPLATIN MYLAN [Suspect]
     Active Substance: CARBOPLATIN
     Indication: OVARIAN CANCER
     Dosage: UNK
     Route: 041
     Dates: start: 201410
  2. CARBOPLATIN MYLAN [Suspect]
     Active Substance: CARBOPLATIN
     Dosage: ??
     Route: 041
     Dates: start: 201411
  3. PACLITAXEL. [Suspect]
     Active Substance: PACLITAXEL
     Indication: OVARIAN CANCER
     Dosage: UNK
     Route: 041
     Dates: start: 201410
  4. PACLITAXEL. [Suspect]
     Active Substance: PACLITAXEL
     Dosage: ??
     Route: 041
     Dates: start: 201411

REACTIONS (1)
  - Dermatomyositis [Fatal]
